FAERS Safety Report 4484959-2 (Version None)
Quarter: 2004Q3

REPORT INFORMATION
  Report Type: 
  Country: None (occurrence: None)
  Receive Date: 20040921
  Receipt Date: 20030729
  Transmission Date: 20050211
  Serious: Yes (Other)
  Sender: FDA-Public Use
  Company Number: 163-20785-03070281

PATIENT
  Age: 34 Year
  Sex: Female

DRUGS (6)
  1. THALOMID [Suspect]
     Indication: GLIOBLASTOMA
     Dosage: 250-500MG, QHS, ORAL
     Route: 048
     Dates: start: 20010803, end: 20031004
  2. DILANTIN [Concomitant]
  3. DEPAKOTE [Concomitant]
  4. LASIX [Concomitant]
  5. PAXIL [Concomitant]
  6. XANAX [Concomitant]

REACTIONS (4)
  - CONDITION AGGRAVATED [None]
  - DIPLOPIA [None]
  - HEMIPARESIS [None]
  - NEUROPATHY PERIPHERAL [None]
